FAERS Safety Report 4368325-6 (Version None)
Quarter: 2004Q2

REPORT INFORMATION
  Report Type: 
  Country: None (occurrence: None)
  Receive Date: 20040527
  Receipt Date: 20040514
  Transmission Date: 20050107
  Serious: Yes (Death)
  Sender: FDA-Public Use
  Company Number: HQWYE895414MAY04

PATIENT
  Age: 67 Year
  Sex: Male

DRUGS (7)
  1. ZURCAZOL    (PANTOPRAZOLE, TABLET, DELAYED RELEASE) [Suspect]
     Indication: PROPHYLAXIS
     Dosage: 40 MG 2X PER 1 DAY
     Route: 048
     Dates: start: 20040123, end: 20040124
  2. CLAVULANIC ACID    (CLACULANIC ACID) [Concomitant]
  3. TICARCILLIN (TICARCILLIN) [Concomitant]
  4. VOLTAREN [Concomitant]
  5. TIMENTIN [Concomitant]
  6. BUPIVACAINE [Concomitant]
  7. LONARID    (AMOBARBITAL/CAFFEINE/CODEINE PHOSPHATE/ [Concomitant]

REACTIONS (1)
  - HEPATORENAL FAILURE [None]
